FAERS Safety Report 12912772 (Version 1)
Quarter: 2016Q4

REPORT INFORMATION
  Report Type: Not Available
  Country: JP (occurrence: JP)
  Receive Date: 20161104
  Receipt Date: 20161104
  Transmission Date: 20170207
  Serious: Yes (Other)
  Sender: FDA-Public Use
  Company Number: JP-ANIPHARMA-2016-JP-000011

PATIENT
  Age: 4 Month
  Sex: Female

DRUGS (1)
  1. CORTICOTROPIN (NON-SPECIFIC) [Suspect]
     Active Substance: CORTICOTROPIN
     Dosage: 0.025 MG/KG/DAY
     Route: 065

REACTIONS (1)
  - Hypertrophic cardiomyopathy [Unknown]
